FAERS Safety Report 6433406-X (Version None)
Quarter: 2009Q4

REPORT INFORMATION
  Report Type: 
  Country: None (occurrence: None)
  Receive Date: 20091109
  Receipt Date: 20050701
  Transmission Date: 20100525
  Serious: Yes (Hospitalization)
  Sender: FDA-Public Use
  Company Number: US-GENENTECH-213352

PATIENT
  Sex: Female

DRUGS (8)
  1. BEVACIZUMAB [Suspect]
     Indication: RENAL CELL CARCINOMA
     Dosage: 10 MG/KG, Q2W
     Route: 042
     Dates: start: 20041223
  2. INTERFERON ALPHA [Suspect]
     Indication: RENAL CELL CARCINOMA
     Dosage: 9 MU, 3/WEEK
     Route: 058
     Dates: start: 20041223
  3. ATENOLOL [Concomitant]
     Indication: HYPERTENSION
  4. COUMADIN [Concomitant]
     Indication: DRUG USE FOR UNKNOWN INDICATION
  5. DIGOXIN [Concomitant]
     Indication: ATRIAL FIBRILLATION
  6. LIPITOR [Concomitant]
     Indication: DRUG USE FOR UNKNOWN INDICATION
  7. ZESTRIL [Concomitant]
     Indication: HYPERTENSION
  8. ALPHAGAN [Concomitant]
     Indication: DRUG USE FOR UNKNOWN INDICATION
     Route: 047

REACTIONS (5)
  - CONVULSION [None]
  - DISEASE PROGRESSION [None]
  - LEFT VENTRICULAR DYSFUNCTION [None]
  - RETROPERITONEAL HAEMORRHAGE [None]
  - STAPHYLOCOCCAL BACTERAEMIA [None]
